FAERS Safety Report 7187077-8 (Version None)
Quarter: 2010Q4

REPORT INFORMATION
  Report Type: 
  Country: None (occurrence: None)
  Receive Date: 20101222
  Receipt Date: 20101216
  Transmission Date: 20110411
  Serious: Yes (Other)
  Sender: FDA-Public Use
  Company Number: DE-AMGEN-DEUSP2010006270

PATIENT

DRUGS (6)
  1. PROLIA [Suspect]
     Indication: OSTEOPOROSIS
     Dosage: 60 MG, Q6MO
     Route: 058
     Dates: start: 20100828
  2. THYROXIN [Concomitant]
     Dosage: 150 A?G, QD
     Route: 048
     Dates: start: 20000718, end: 20101116
  3. DREISAVIT                          /00844801/ [Concomitant]
     Dosage: UNK UNK, QD
     Route: 048
     Dates: start: 20051116, end: 20101116
  4. PRAVASTATIN [Concomitant]
     Indication: HYPERLIPIDAEMIA
     Dosage: 10 MG, QD
     Route: 048
     Dates: start: 20080710, end: 20101116
  5. ASPIRIN [Concomitant]
     Indication: CORONARY ARTERY DISEASE
     Dosage: 100 MG, QD
     Route: 048
     Dates: start: 20070825, end: 20101116
  6. CALCET                             /00637401/ [Concomitant]
     Dosage: 1900 MG, BID
     Route: 048
     Dates: start: 20090711, end: 20101116

REACTIONS (1)
  - BLOOD PARATHYROID HORMONE INCREASED [None]
